FAERS Safety Report 6170164-0 (Version None)
Quarter: 2009Q2

REPORT INFORMATION
  Report Type: 
  Country: None (occurrence: None)
  Receive Date: 20090427
  Receipt Date: 20090427
  Transmission Date: 20091009
  Serious: Yes (Disabling, Other)
  Sender: FDA-Public Use
  Company Number: None

PATIENT
  Sex: Male
  Weight: 72.5755 kg

DRUGS (2)
  1. ARICEPT [Suspect]
     Indication: DEMENTIA ALZHEIMER'S TYPE
     Dosage: 10 MGS. 1 TIME A DAY
     Dates: start: 20080101, end: 20090101
  2. ARICEPT [Suspect]
     Indication: DEMENTIA ALZHEIMER'S TYPE
     Dosage: 10 MGS. 1 TIME A DAY
     Dates: start: 20070101

REACTIONS (5)
  - EYE HAEMORRHAGE [None]
  - RETINAL DETACHMENT [None]
  - RETINAL TEAR [None]
  - SCAR [None]
  - SURGICAL PROCEDURE REPEATED [None]
